FAERS Safety Report 6405628-5 (Version None)
Quarter: 2009Q4

REPORT INFORMATION
  Report Type: 
  Country: None (occurrence: None)
  Receive Date: 20091019
  Receipt Date: 20091014
  Transmission Date: 20100525
  Serious: Yes (Other)
  Sender: FDA-Public Use
  Company Number: A0811818A

PATIENT
  Age: 48 Year
  Sex: Female

DRUGS (5)
  1. WELLBUTRIN SR [Suspect]
     Indication: DEPRESSION
     Dosage: 300MG PER DAY
     Route: 048
     Dates: start: 20000101, end: 20040101
  2. BUPROPION HYDROCHLORIDE [Suspect]
     Indication: DEPRESSION
     Dosage: 100MG PER DAY
     Route: 048
     Dates: start: 20070101, end: 20090901
  3. SYNTHROID [Concomitant]
  4. EFFEXOR [Concomitant]
  5. UNKNOWN MEDICATION [Concomitant]
     Indication: PARKINSON'S DISEASE

REACTIONS (5)
  - ANXIETY [None]
  - DEPRESSION [None]
  - DRUG INEFFECTIVE [None]
  - PARKINSON'S DISEASE [None]
  - TREMOR [None]
